FAERS Safety Report 4837138-0 (Version None)
Quarter: 2005Q4

REPORT INFORMATION
  Report Type: 
  Country: None (occurrence: None)
  Receive Date: 20051122
  Receipt Date: 20051107
  Transmission Date: 20060501
  Serious: Yes (Hospitalization)
  Sender: FDA-Public Use
  Company Number: 914#1#2005-00018

PATIENT
  Sex: 0

DRUGS (1)
  1. VERELAN PM [Suspect]
     Indication: HYPERTENSION
     Dosage: 300MG, UNKNOWN FREQUENCY, ORAL
     Route: 048

REACTIONS (1)
  - ATRIAL FIBRILLATION [None]
